FAERS Safety Report 21831970 (Version 2)
Quarter: 2023Q2

REPORT INFORMATION
  Report Type: Report from Study
  Country: CN (occurrence: CN)
  Receive Date: 20230106
  Receipt Date: 20230407
  Transmission Date: 20230722
  Serious: Yes (Death, Hospitalization, Other)
  Sender: FDA-Public Use
  Company Number: CN-002147023-NVSC2020CN261712

PATIENT
  Age: 50 Year
  Sex: Male
  Weight: 92 kg

DRUGS (4)
  1. ENTRESTO [Suspect]
     Active Substance: SACUBITRIL\VALSARTAN
     Indication: Cardiac failure
     Dosage: 50 MG, BID
     Route: 048
     Dates: start: 20200324, end: 20200628
  2. ATORVASTATIN CALCIUM ANHYDROUS [Concomitant]
     Active Substance: ATORVASTATIN CALCIUM ANHYDROUS
     Indication: Coronary artery disease
     Dosage: 10 MG, QD
     Route: 048
     Dates: start: 20200324
  3. TORSEMIDE [Concomitant]
     Active Substance: TORSEMIDE
     Indication: Cardiac failure
     Dosage: 10 MG, QD
     Route: 048
     Dates: start: 20200327
  4. POTASSIUM CHLORIDE [Concomitant]
     Active Substance: POTASSIUM CHLORIDE
     Indication: Cardiac failure
     Dosage: 1 G, TID (SUSTAINED RELEASE TABLETS)
     Route: 048
     Dates: start: 20200327

REACTIONS (3)
  - Cardiac failure chronic [Fatal]
  - Dyspnoea [Not Recovered/Not Resolved]
  - Cardio-respiratory arrest [Unknown]

NARRATIVE: CASE EVENT DATE: 20200702
